FAERS Safety Report 15965469 (Version 2)
Quarter: 2019Q2

REPORT INFORMATION
  Report Type: Report from Study
  Country: JP (occurrence: JP)
  Receive Date: 20190215
  Receipt Date: 20190411
  Transmission Date: 20190711
  Serious: No
  Sender: FDA-Public Use
  Company Number: JP-ACTELION-A-CH2019-186067

PATIENT
  Age: 53 Year
  Sex: Female
  Weight: 43 kg

DRUGS (4)
  1. URSO [Concomitant]
     Active Substance: URSODIOL
  2. PARIET [Concomitant]
     Active Substance: RABEPRAZOLE SODIUM
  3. TRACLEER [Suspect]
     Active Substance: BOSENTAN
     Indication: SKIN ULCER
     Dosage: 62.5 MG, BID
     Route: 048
     Dates: start: 20170915, end: 20171116
  4. TRACLEER [Suspect]
     Active Substance: BOSENTAN
     Dosage: 62.5 MG, QD
     Route: 048
     Dates: start: 20170911, end: 20170914

REACTIONS (3)
  - Irritable bowel syndrome [Recovering/Resolving]
  - Faeces soft [Recovering/Resolving]
  - Anal incontinence [Recovering/Resolving]

NARRATIVE: CASE EVENT DATE: 201710
